FAERS Safety Report 8801763 (Version 1)
Quarter: 2012Q4

REPORT INFORMATION
  Report Type: 
  Country: GB (occurrence: GB)
  Receive Date: 20120921
  Receipt Date: 20120921
  Transmission Date: 20130627
  Serious: Yes (Other)
  Sender: FDA-Public Use
  Company Number: GB-ABBOTT-12P-167-0968417-00

PATIENT
  Sex: Female
  Weight: 55.2 kg

DRUGS (8)
  1. HUMIRA 40 MG/ 0.8 ML PRE-FILLED SYRINGE [Suspect]
     Indication: RHEUMATOID ARTHRITIS
     Route: 058
     Dates: start: 20110819, end: 20120531
  2. HYDROXYCHLOROQUINE [Concomitant]
     Indication: RHEUMATOID ARTHRITIS
     Route: 048
     Dates: start: 20100511, end: 20120508
  3. SIMVASTATIN [Concomitant]
     Indication: THROMBOSIS
     Route: 048
     Dates: start: 2005
  4. AMLODIPINE [Concomitant]
     Indication: HYPERTENSION
     Route: 048
  5. RAMIPRIL [Concomitant]
     Indication: HYPERTENSION
     Route: 048
  6. ADCAL D3 [Concomitant]
     Indication: OSTEOPOROSIS
     Route: 048
  7. CLOPIDOGREL [Concomitant]
     Indication: THROMBOSIS
     Route: 048
     Dates: start: 2005
  8. ALENDRONIC ACID [Concomitant]
     Indication: OSTEOPOROSIS
     Route: 048

REACTIONS (5)
  - Skin plaque [Recovering/Resolving]
  - Pustular psoriasis [Recovering/Resolving]
  - Rash [Recovering/Resolving]
  - Pruritus [Recovering/Resolving]
  - Rash pustular [Recovering/Resolving]
